FAERS Safety Report 5912087-5 (Version None)
Quarter: 2008Q4

REPORT INFORMATION
  Report Type: 
  Country: None (occurrence: None)
  Receive Date: 20081007
  Receipt Date: 20081007
  Transmission Date: 20090506
  Serious: Yes (Life-Threatening)
  Sender: FDA-Public Use
  Company Number: None

PATIENT
  Sex: Female
  Weight: 50.8029 kg

DRUGS (2)
  1. ALENDRONATE SODIUM [Suspect]
     Indication: OSTEOPENIA
     Dosage: 0NE 70 MG TABLET ONCE WEEKLY
     Dates: start: 20080301, end: 20080420
  2. FOSAMAX [Suspect]
     Indication: OSTEOPENIA
     Dosage: ONE 70MG TABLET ONCE WEEKLY
     Dates: start: 20070901, end: 20080301

REACTIONS (1)
  - LIVER FUNCTION TEST ABNORMAL [None]
